FAERS Safety Report 5573062-6 (Version None)
Quarter: 2007Q4

REPORT INFORMATION
  Report Type: 
  Country: None (occurrence: None)
  Receive Date: 20071224
  Receipt Date: 20071218
  Transmission Date: 20080405
  Serious: Yes (Death)
  Sender: FDA-Public Use
  Company Number: PT-BRISTOL-MYERS SQUIBB COMPANY-14019822

PATIENT
  Age: 7 Year

DRUGS (2)
  1. ATAZANAVIR [Suspect]
  2. RITONAVIR [Concomitant]

REACTIONS (1)
  - PNEUMONIA [None]
